FAERS Safety Report 7548046-9 (Version None)
Quarter: 2011Q2

REPORT INFORMATION
  Report Type: 
  Country: None (occurrence: None)
  Receive Date: 20110524
  Receipt Date: 20110131
  Transmission Date: 20111010
  Serious: No
  Sender: FDA-Public Use
  Company Number: 026639

PATIENT
  Sex: Female
  Weight: 79.3 kg

DRUGS (4)
  1. METHOTREXATE [Concomitant]
  2. CIMZIA [Suspect]
     Indication: RHEUMATOID ARTHRITIS
     Dosage: 200 MG  1X/2 WEEKS SUBCUTANEOUS
     Route: 058
     Dates: start: 20081201
  3. FOLIC ACID [Concomitant]
  4. CYCLOBENZAPRINE [Concomitant]

REACTIONS (2)
  - PERIODONTAL DISEASE [None]
  - GINGIVAL SWELLING [None]
